FAERS Safety Report 12098743 (Version 1)
Quarter: 2016Q1

REPORT INFORMATION
  Report Type: Spontaneous
  Country: US (occurrence: US)
  Receive Date: 20160222
  Receipt Date: 20160222
  Transmission Date: 20160526
  Serious: Yes (Hospitalization)
  Sender: FDA-Public Use
  Company Number: US-ACCORD-037944

PATIENT
  Age: 73 Year
  Sex: Male

DRUGS (2)
  1. METHOTREXATE [Suspect]
     Active Substance: METHOTREXATE
     Indication: RHEUMATOID ARTHRITIS
     Dosage: LAST DOSE WAS RECEIVED 2 WEEKS AGO
     Route: 048
  2. FOLIC ACID. [Concomitant]
     Active Substance: FOLIC ACID

REACTIONS (1)
  - Posterior reversible encephalopathy syndrome [Recovered/Resolved]
